FAERS Safety Report 14551719 (Version 2)
Quarter: 2018Q2

REPORT INFORMATION
  Report Type: Spontaneous
  Country: US (occurrence: US)
  Receive Date: 20180220
  Receipt Date: 20180604
  Transmission Date: 20180711
  Serious: Yes (Hospitalization, Disabling, Other)
  Sender: FDA-Public Use
  Company Number: US-ASTRAZENECA-2018SE21167

PATIENT
  Age: 62 Year
  Sex: Female
  Weight: 89.4 kg

DRUGS (32)
  1. NEXIUM [Suspect]
     Active Substance: ESOMEPRAZOLE MAGNESIUM
     Indication: GASTROOESOPHAGEAL REFLUX DISEASE
     Route: 048
     Dates: start: 20101109
  2. LASIX [Concomitant]
     Active Substance: FUROSEMIDE
     Indication: OEDEMA
  3. PRILOSEC [Suspect]
     Active Substance: OMEPRAZOLE MAGNESIUM
     Indication: GASTROOESOPHAGEAL REFLUX DISEASE
     Dosage: GENERIC 40 MG DAILY
     Route: 065
     Dates: start: 20150506
  4. DEXILANT [Suspect]
     Active Substance: DEXLANSOPRAZOLE
     Route: 065
  5. PROTONIX [Suspect]
     Active Substance: PANTOPRAZOLE SODIUM
     Route: 065
  6. ZANTAC [Concomitant]
     Active Substance: RANITIDINE HYDROCHLORIDE
     Dosage: 75
  7. LASIX [Concomitant]
     Active Substance: FUROSEMIDE
     Indication: BLOOD PRESSURE ABNORMAL
  8. DILTIAZEM. [Concomitant]
     Active Substance: DILTIAZEM
  9. NEXIUM [Suspect]
     Active Substance: ESOMEPRAZOLE MAGNESIUM
     Indication: GASTROOESOPHAGEAL REFLUX DISEASE
     Route: 048
     Dates: start: 20110829
  10. CALTRATE [Concomitant]
     Active Substance: CALCIUM CARBONATE
     Indication: BONE DISORDER
  11. LISINOPRIL. [Concomitant]
     Active Substance: LISINOPRIL
     Dosage: DAILY UNKNOWN
  12. POTASSIUM CHLORIDE. [Concomitant]
     Active Substance: POTASSIUM CHLORIDE
     Dosage: TAKE 2 TABLET EVERYDAY WITH FOOD
  13. ATORVASTATIN [Concomitant]
     Active Substance: ATORVASTATIN
     Indication: BLOOD CHOLESTEROL ABNORMAL
     Dates: start: 2016, end: 2017
  14. GABAPENTIN. [Concomitant]
     Active Substance: GABAPENTIN
     Indication: PAIN
     Dates: start: 2009, end: 2015
  15. LORTAB [Concomitant]
     Active Substance: ACETAMINOPHEN\HYDROCODONE BITARTRATE
     Indication: PAIN
  16. LASIX [Concomitant]
     Active Substance: FUROSEMIDE
     Indication: FLUID IMBALANCE
  17. NEXIUM [Suspect]
     Active Substance: ESOMEPRAZOLE MAGNESIUM
     Indication: GASTROOESOPHAGEAL REFLUX DISEASE
     Route: 048
     Dates: start: 20151113
  18. ZEGERID [Suspect]
     Active Substance: OMEPRAZOLE\SODIUM BICARBONATE
     Route: 065
  19. LOSARTAN. [Concomitant]
     Active Substance: LOSARTAN
     Indication: BLOOD PRESSURE ABNORMAL
     Dates: start: 2015
  20. PEPCID AC [Concomitant]
     Active Substance: FAMOTIDINE
  21. CELEXA [Concomitant]
     Active Substance: CITALOPRAM HYDROBROMIDE
  22. ZOCOR [Concomitant]
     Active Substance: SIMVASTATIN
  23. NEXIUM [Suspect]
     Active Substance: ESOMEPRAZOLE MAGNESIUM
     Indication: GASTROOESOPHAGEAL REFLUX DISEASE
     Route: 048
     Dates: start: 2013, end: 2014
  24. LISINOPRIL. [Suspect]
     Active Substance: LISINOPRIL
     Indication: BLOOD PRESSURE ABNORMAL
     Route: 048
     Dates: start: 2017
  25. PRAVASTATIN. [Concomitant]
     Active Substance: PRAVASTATIN
     Indication: BLOOD CHOLESTEROL ABNORMAL
     Dates: start: 2014
  26. VERAPAMIL [Concomitant]
     Active Substance: VERAPAMIL HYDROCHLORIDE
     Indication: PAIN
     Dates: start: 2008
  27. NEXIUM [Suspect]
     Active Substance: ESOMEPRAZOLE MAGNESIUM
     Indication: GASTROOESOPHAGEAL REFLUX DISEASE
     Route: 048
     Dates: start: 20130109
  28. NEXIUM [Suspect]
     Active Substance: ESOMEPRAZOLE MAGNESIUM
     Indication: GASTROOESOPHAGEAL REFLUX DISEASE
     Route: 048
     Dates: start: 20151208
  29. PREVACID [Suspect]
     Active Substance: LANSOPRAZOLE
     Route: 065
  30. TOPAMAX [Concomitant]
     Active Substance: TOPIRAMATE
     Indication: HEADACHE
     Dates: start: 2009
  31. HYDROCODONE [Concomitant]
     Active Substance: HYDROCODONE
     Indication: PAIN
     Dates: start: 2009
  32. VITAMIN B COMPLEX [Concomitant]
     Active Substance: CYANOCOBALAMIN\DEXPANTHENOL\NIACINAMIDE\PYRIDOXINE HYDROCHLORIDE\RIBOFLAVIN 5^-PHOSPHATE SODIUM\THIAMINE HYDROCHLORIDE\VITAMIN B COMPLEX
     Indication: CARDIAC DISORDER

REACTIONS (8)
  - Chronic kidney disease [Unknown]
  - Hyperlipidaemia [Unknown]
  - Dyslipidaemia [Unknown]
  - Spinal cord injury [Unknown]
  - Hypocalcaemia [Unknown]
  - Obesity [Unknown]
  - Pharyngitis streptococcal [Unknown]
  - Essential hypertension [Unknown]

NARRATIVE: CASE EVENT DATE: 2016
